FAERS Safety Report 7522889-X (Version None)
Quarter: 2011Q2

REPORT INFORMATION
  Report Type: 
  Country: None (occurrence: None)
  Receive Date: 20110603
  Receipt Date: 20110601
  Transmission Date: 20111010
  Serious: Yes (Death, Hospitalization, Other)
  Sender: FDA-Public Use
  Company Number: PHHO2010IT19287

PATIENT
  Sex: Male

DRUGS (9)
  1. ZEFFIX [Concomitant]
     Indication: HEPATITIS B
  2. BISOPROLOL FUMARATE [Concomitant]
  3. PLASIL [Concomitant]
  4. ALBUMIN (HUMAN) [Concomitant]
  5. OMEPRAZOLE [Concomitant]
     Indication: GASTRITIS
  6. EVEROLIMUS [Suspect]
     Indication: HEPATIC NEOPLASM MALIGNANT
     Dosage: UNK
     Dates: start: 20101117, end: 20101210
  7. DE-URSIL [Concomitant]
     Indication: CHOLESTASIS
  8. VIREAD [Concomitant]
  9. PERIDON [Concomitant]
     Indication: GASTRITIS

REACTIONS (4)
  - HEPATIC NEOPLASM MALIGNANT [None]
  - HEPATIC ENCEPHALOPATHY [None]
  - NEOPLASM MALIGNANT [None]
  - CONCOMITANT DISEASE PROGRESSION [None]
